FAERS Safety Report 5187207-3 (Version None)
Quarter: 2006Q4

REPORT INFORMATION
  Report Type: 
  Country: None (occurrence: None)
  Receive Date: 20061214
  Receipt Date: 20061204
  Transmission Date: 20070319
  Serious: Yes (Other)
  Sender: FDA-Public Use
  Company Number: 2006150287

PATIENT
  Age: 43 Year
  Sex: Male

DRUGS (4)
  1. DOXORUBICIN HCL [Suspect]
     Indication: BURKITT'S LYMPHOMA
     Dates: start: 19980101, end: 19980901
  2. CYCLOPHOSPHAMIDE [Suspect]
     Indication: BURKITT'S LYMPHOMA
     Dates: start: 19980101, end: 19980901
  3. METHOTREXATE SODIUM [Suspect]
     Indication: BURKITT'S LYMPHOMA
     Dosage: INTRATHECAL
     Route: 037
     Dates: start: 19980101, end: 19980901
  4. VINCRISTINE SULFATE [Suspect]
     Indication: BURKITT'S LYMPHOMA
     Dates: start: 19980101, end: 19980901

REACTIONS (10)
  - JAW DISORDER [None]
  - LOCALISED OEDEMA [None]
  - LUMBAR VERTEBRAL FRACTURE [None]
  - OSTEONECROSIS [None]
  - OSTEOPENIA [None]
  - OSTEOPOROSIS [None]
  - PAIN IN EXTREMITY [None]
  - PATHOLOGICAL FRACTURE [None]
  - SPINAL COMPRESSION FRACTURE [None]
  - THORACIC VERTEBRAL FRACTURE [None]
